FAERS Safety Report 20684636 (Version 1)
Quarter: 2022Q2

REPORT INFORMATION
  Report Type: Spontaneous
  Country: BE (occurrence: BE)
  Receive Date: 20220407
  Receipt Date: 20220407
  Transmission Date: 20220721
  Serious: Yes (Hospitalization, Other)
  Sender: FDA-Public Use
  Company Number: BE-PFIZER INC-202200498505

PATIENT
  Age: 57 Year
  Sex: Male

DRUGS (18)
  1. AZITHROMYCIN [Interacting]
     Active Substance: AZITHROMYCIN
     Indication: Cystic fibrosis
     Dosage: 250 MG, DAILY
     Dates: start: 202104
  2. AZITHROMYCIN [Interacting]
     Active Substance: AZITHROMYCIN
     Dosage: 500 MG, DAILY
     Dates: start: 2015, end: 202108
  3. AMLODIPINE BESYLATE [Interacting]
     Active Substance: AMLODIPINE BESYLATE
     Dosage: UNK
  4. PREGABALIN [Interacting]
     Active Substance: PREGABALIN
     Indication: Cystic fibrosis
     Dosage: UNK
  5. PREGABALIN [Interacting]
     Active Substance: PREGABALIN
     Indication: Renal failure
  6. SPIRONOLACTONE [Interacting]
     Active Substance: SPIRONOLACTONE
     Indication: Cystic fibrosis
  7. SPIRONOLACTONE [Interacting]
     Active Substance: SPIRONOLACTONE
     Indication: Renal failure
  8. TEZACAFTOR [Interacting]
     Active Substance: TEZACAFTOR
     Indication: Cystic fibrosis
     Dosage: 100 MG, DAILY
  9. IVACAFTOR [Interacting]
     Active Substance: IVACAFTOR
     Indication: Cystic fibrosis
     Dosage: 300 MG, DAILY
  10. ELEXACAFTOR [Interacting]
     Active Substance: ELEXACAFTOR
     Indication: Cystic fibrosis
     Dosage: UNK
  11. AZTREONAM [Interacting]
     Active Substance: AZTREONAM
     Indication: Cystic fibrosis
  12. BUMETANIDE [Interacting]
     Active Substance: BUMETANIDE
     Indication: Cystic fibrosis
  13. CHLORTHALIDONE [Interacting]
     Active Substance: CHLORTHALIDONE
     Indication: Cystic fibrosis
     Dosage: UNK
  14. CLONAZEPAM [Interacting]
     Active Substance: CLONAZEPAM
     Indication: Cystic fibrosis
  15. COLISTIMETHATE SODIUM [Interacting]
     Active Substance: COLISTIMETHATE SODIUM
     Indication: Cystic fibrosis
  16. FUROSEMIDE [Interacting]
     Active Substance: FUROSEMIDE
     Indication: Cystic fibrosis
  17. TAMSULOSIN [Interacting]
     Active Substance: TAMSULOSIN
     Indication: Cystic fibrosis
  18. TEICOPLANIN [Interacting]
     Active Substance: TEICOPLANIN
     Indication: Cystic fibrosis

REACTIONS (2)
  - Drug interaction [Unknown]
  - Blood alkaline phosphatase increased [Unknown]
